APPROVED DRUG PRODUCT: NIACIN
Active Ingredient: NIACIN
Strength: 500MG
Dosage Form/Route: TABLET, EXTENDED RELEASE;ORAL
Application: A207726 | Product #001 | TE Code: AB
Applicant: MPP PHARMA LLC
Approved: Jul 25, 2025 | RLD: No | RS: No | Type: RX